FAERS Safety Report 20332641 (Version 1)
Quarter: 2022Q1

REPORT INFORMATION
  Report Type: Spontaneous
  Country: US (occurrence: US)
  Receive Date: 20220113
  Receipt Date: 20220113
  Transmission Date: 20220424
  Serious: Yes (Other)
  Sender: FDA-Public Use
  Company Number: US-NOVARTISPH-NVSC2022US003792

PATIENT
  Age: 81 Year
  Sex: Female

DRUGS (4)
  1. RANITIDINE [Suspect]
     Active Substance: RANITIDINE
     Indication: Diverticulitis
     Dosage: 150 TO 300 MG, QD
     Route: 065
     Dates: end: 202012
  2. RANITIDINE [Suspect]
     Active Substance: RANITIDINE
     Indication: Gastrointestinal disorder
  3. RANITIDINE [Suspect]
     Active Substance: RANITIDINE
     Indication: Diverticulitis
     Dosage: 150 TO 300 MG, QD
     Route: 065
     Dates: end: 202012
  4. RANITIDINE [Suspect]
     Active Substance: RANITIDINE
     Indication: Gastrointestinal disorder

REACTIONS (2)
  - Pancreatic carcinoma stage IV [Unknown]
  - Product use in unapproved indication [Unknown]

NARRATIVE: CASE EVENT DATE: 20200501
